FAERS Safety Report 9290114 (Version 1)
Quarter: 2013Q2

REPORT INFORMATION
  Report Type: Spontaneous
  Country: US (occurrence: None)
  Receive Date: 20130514
  Receipt Date: 20130514
  Transmission Date: 20140414
  Serious: Yes (Disabling, Other)
  Sender: FDA-Public Use
  Company Number: None

PATIENT
  Sex: Female

DRUGS (4)
  1. KLONOPIN [Suspect]
     Indication: ANXIETY
     Dates: start: 201305
  2. KLONOPIN [Suspect]
     Indication: STRESS
     Dates: start: 201305
  3. KLONOPIN [Suspect]
     Indication: INSOMNIA
     Dates: start: 201305
  4. KLONOPIN [Suspect]
     Indication: DECREASED APPETITE
     Dates: start: 201305

REACTIONS (6)
  - Decreased appetite [None]
  - Insomnia [None]
  - Stress [None]
  - Anxiety [None]
  - Weight decreased [None]
  - Unevaluable event [None]
